FAERS Safety Report 15817759 (Version 1)
Quarter: 2019Q1

REPORT INFORMATION
  Report Type: Spontaneous
  Country: US (occurrence: US)
  Receive Date: 20190113
  Receipt Date: 20190113
  Transmission Date: 20190417
  Serious: No
  Sender: FDA-Public Use
  Company Number: US-TEVA-2018-US-992823

PATIENT
  Sex: Female

DRUGS (1)
  1. PROAIR RESPICLICK [Suspect]
     Active Substance: ALBUTEROL SULFATE
     Dosage: HAD TO TAKE 2 PUFFS INSTEAD OF THE PRESCRIBED 1 TO GET EFFECT
     Route: 065

REACTIONS (3)
  - Product substitution issue [Unknown]
  - Product taste abnormal [Unknown]
  - Drug ineffective [Unknown]
